FAERS Safety Report 6944966-4 (Version None)
Quarter: 2010Q3

REPORT INFORMATION
  Report Type: 
  Country: None (occurrence: None)
  Receive Date: 20100827
  Receipt Date: 20100727
  Transmission Date: 20110219
  Serious: Yes (Other)
  Sender: FDA-Public Use
  Company Number: JP-ASTRAZENECA-2010SE34968

PATIENT
  Age: 67 Year
  Sex: Male

DRUGS (3)
  1. CASODEX [Suspect]
     Indication: PROSTATE CANCER
     Route: 048
  2. TS-1 [Concomitant]
     Dosage: DOSE UNKNOWN
     Route: 048
  3. CISPLATIN [Concomitant]
     Dosage: DOSE UNKNOWN
     Route: 041

REACTIONS (1)
  - MALAISE [None]
